FAERS Safety Report 5496530-4 (Version None)
Quarter: 2007Q4

REPORT INFORMATION
  Report Type: 
  Country: None (occurrence: None)
  Receive Date: 20071025
  Receipt Date: 20070608
  Transmission Date: 20080405
  Serious: No
  Sender: FDA-Public Use
  Company Number: A0655150A

PATIENT
  Age: 85 Year
  Sex: Female

DRUGS (4)
  1. ADVAIR DISKUS 100/50 [Suspect]
     Indication: ASTHMA
     Route: 055
     Dates: start: 20070402, end: 20070410
  2. PLAVIX [Concomitant]
  3. NORVASC [Concomitant]
  4. EVISTA [Concomitant]

REACTIONS (2)
  - COUGH [None]
  - DYSPNOEA [None]
